FAERS Safety Report 5667183-7 (Version None)
Quarter: 2008Q1

REPORT INFORMATION
  Report Type: 
  Country: None (occurrence: None)
  Receive Date: 20080315
  Receipt Date: 20080114
  Transmission Date: 20080703
  Serious: No
  Sender: FDA-Public Use
  Company Number: US-ABBOTT-08P-163-0433653-00

PATIENT
  Sex: Female
  Weight: 50.848 kg

DRUGS (6)
  1. HUMIRA [Suspect]
     Indication: CROHN'S DISEASE
     Route: 058
     Dates: start: 20071103
  2. CIPROFLOXACIN [Concomitant]
     Indication: PROPHYLAXIS
     Route: 048
     Dates: start: 20070701
  3. CIPROFLOXACIN [Concomitant]
     Indication: CROHN'S DISEASE
  4. METRONIDAZOLE HCL [Concomitant]
     Indication: PROPHYLAXIS
     Route: 048
     Dates: start: 20071101
  5. METRONIDAZOLE HCL [Concomitant]
     Indication: CROHN'S DISEASE
  6. BIRTH CONTROL PILL [Concomitant]
     Indication: METRORRHAGIA
     Route: 048

REACTIONS (1)
  - METRORRHAGIA [None]
